FAERS Safety Report 8844735 (Version 2)
Quarter: 2013Q2

REPORT INFORMATION
  Report Type: Spontaneous
  Country: US (occurrence: None)
  Receive Date: 20120426
  Receipt Date: 20120703
  Transmission Date: 20140414
  Serious: No
  Sender: FDA-Public Use
  Company Number: PHEH2012US003226

PATIENT
  Age: 38 Year
  Sex: Female

DRUGS (3)
  1. GILENYA [Suspect]
     Indication: MULTIPLE SCLEROSIS
     Route: 048
     Dates: start: 201112
  2. ABALE [Suspect]
  3. LATISSUES [Suspect]

REACTIONS (5)
  - Constipation [None]
  - Abnormal faeces [None]
  - Nasal congestion [None]
  - Dyspnoea [None]
  - Diarrhoea [None]
